FAERS Safety Report 12466587 (Version 1)
Quarter: 2016Q2

REPORT INFORMATION
  Report Type: Spontaneous
  Country: US (occurrence: US)
  Receive Date: 20160615
  Receipt Date: 20160615
  Transmission Date: 20160815
  Serious: Yes (Other)
  Sender: FDA-Public Use
  Company Number: US-009507513-1606USA004494

PATIENT
  Age: 21 Year
  Sex: Female
  Weight: 90.7 kg

DRUGS (1)
  1. NEXPLANON [Suspect]
     Active Substance: ETONOGESTREL
     Indication: CONTRACEPTION
     Dosage: 3 YEAR IMPLANT IN LEFT ARM
     Route: 059
     Dates: start: 20150225

REACTIONS (6)
  - Device dislocation [Not Recovered/Not Resolved]
  - Implant site pain [Unknown]
  - Dysmenorrhoea [Unknown]
  - Anger [Unknown]
  - Menorrhagia [Unknown]
  - Mood swings [Unknown]

NARRATIVE: CASE EVENT DATE: 201503
